FAERS Safety Report 7033623-4 (Version None)
Quarter: 2010Q4

REPORT INFORMATION
  Report Type: 
  Country: None (occurrence: None)
  Receive Date: 20101005
  Receipt Date: 20100920
  Transmission Date: 20110411
  Serious: Yes (Death, Hospitalization, Other)
  Sender: FDA-Public Use
  Company Number: 2010004040

PATIENT
  Age: 72 Year
  Sex: Male

DRUGS (6)
  1. TARCEVA (ERLOTINIB) (TABLET) (ERLOTINIB) [Suspect]
     Indication: NON-SMALL CELL LUNG CANCER
     Dosage: (150 MG, QD), ORAL
     Route: 048
     Dates: start: 20090201
  2. CARBOPLATIN [Concomitant]
  3. DOCETAXEL [Concomitant]
  4. PACLITAXEL [Concomitant]
  5. IRINOTECAN HCL [Concomitant]
  6. GEMCITABINE [Concomitant]

REACTIONS (1)
  - HAEMOPTYSIS [None]
